FAERS Safety Report 8908384 (Version 2)
Quarter: 2012Q4

REPORT INFORMATION
  Report Type: 
  Country: US (occurrence: US)
  Receive Date: 20121114
  Receipt Date: 20121123
  Transmission Date: 20130627
  Serious: Yes (Other)
  Sender: FDA-Public Use
  Company Number: PHEH2012US021040

PATIENT
  Sex: Male

DRUGS (29)
  1. GLEEVEC [Suspect]
     Indication: CHRONIC MYELOID LEUKAEMIA
     Dosage: 400 mg, daily
     Route: 048
     Dates: start: 20050901
  2. KETOCONAZOLE [Concomitant]
  3. VITAMIN D [Concomitant]
     Dosage: 50 MIU, 1 every other week
  4. BENICAR [Concomitant]
     Dosage: 40 mg, daily
  5. ATENOLOL [Concomitant]
     Dosage: 100 mg, daily
  6. FENOBIBRATE [Concomitant]
     Dosage: 54 mg, daily
  7. FELODIPINE [Concomitant]
     Dosage: 10 mg, ER, daily
  8. JANUVIA [Concomitant]
     Dosage: 100 mg, daily
  9. GLIMEPIRIDE [Concomitant]
     Dosage: 2 mg, daily
  10. LIPITOR [Concomitant]
  11. RASPBERRY COMPLEX VITAMIN [Concomitant]
  12. FENOFIBRATE [Concomitant]
  13. ALFALFA [Concomitant]
  14. SE 2 [Concomitant]
  15. MULTIVITAMINS [Concomitant]
  16. SUPER BETA PROSTATE [Concomitant]
  17. IMMUNITY [Concomitant]
  18. GARLIC [Concomitant]
  19. KRILL OIL [Concomitant]
  20. STEMFLOVA [Concomitant]
  21. ALDEMENT HGH [Concomitant]
  22. BERBERINE [Concomitant]
  23. GLUCOSE [Concomitant]
  24. ANTHROZYME PLUS [Concomitant]
  25. OMEGA GUARD [Concomitant]
  26. ZINC [Concomitant]
  27. LECITHINE [Concomitant]
  28. KERAMAX [Concomitant]
  29. CO Q 10 [Concomitant]

REACTIONS (15)
  - Type 2 diabetes mellitus [Unknown]
  - Poor peripheral circulation [Unknown]
  - Gait disturbance [Unknown]
  - Obesity [Unknown]
  - Blister [Unknown]
  - Pain [Unknown]
  - Blood potassium decreased [Unknown]
  - Skin exfoliation [Unknown]
  - Arthralgia [Unknown]
  - Muscle spasms [Unknown]
  - Musculoskeletal discomfort [Unknown]
  - Dry mouth [Unknown]
  - Fluid retention [Unknown]
  - Weight increased [Unknown]
  - Pain in extremity [Unknown]
